FAERS Safety Report 22395514 (Version 1)
Quarter: 2023Q2

REPORT INFORMATION
  Report Type: Report from Study
  Country: IL (occurrence: IL)
  Receive Date: 20230601
  Receipt Date: 20230601
  Transmission Date: 20230722
  Serious: Yes (Hospitalization, Other)
  Sender: FDA-Public Use
  Company Number: IL-KYOWAKIRIN-2023BKK002418

PATIENT

DRUGS (4)
  1. BUROSUMAB [Suspect]
     Active Substance: BUROSUMAB
     Indication: Hereditary hypophosphataemic rickets
     Dosage: 10 MG, 1X/2 WEEKS
     Route: 065
     Dates: start: 20230131
  2. BUROSUMAB [Suspect]
     Active Substance: BUROSUMAB
     Dosage: 6 MG, 1X/2 WEEKS
     Route: 065
     Dates: start: 202302
  3. BUROSUMAB [Suspect]
     Active Substance: BUROSUMAB
     Dosage: 8 MG, 1X/2 WEEKS
     Route: 065
     Dates: start: 20230228
  4. BUROSUMAB [Suspect]
     Active Substance: BUROSUMAB
     Dosage: 10 MG, 1X/2 WEEKS
     Route: 065
     Dates: start: 20230314

REACTIONS (14)
  - Generalised resistance to thyroid hormone [Unknown]
  - Eye inflammation [Unknown]
  - Pyrexia [Recovered/Resolved]
  - Swelling [Recovering/Resolving]
  - Crying [Unknown]
  - Weight increased [Unknown]
  - Blood phosphorus decreased [Recovering/Resolving]
  - Insomnia [Unknown]
  - Back pain [Unknown]
  - Diarrhoea [Unknown]
  - Diarrhoea [Recovered/Resolved]
  - Pyrexia [Recovered/Resolved]
  - Pyrexia [Unknown]
  - Incorrect dose administered [Unknown]

NARRATIVE: CASE EVENT DATE: 20230101
